FAERS Safety Report 5565520-5 (Version None)
Quarter: 2007Q4

REPORT INFORMATION
  Report Type: 
  Country: None (occurrence: None)
  Receive Date: 20071218
  Receipt Date: 20071206
  Transmission Date: 20080405
  Serious: Yes (Hospitalization)
  Sender: FDA-Public Use
  Company Number: FR-SANOFI-SYNTHELABO-A01200712972

PATIENT
  Sex: Male

DRUGS (14)
  1. TENORMIN [Concomitant]
     Indication: DRUG USE FOR UNKNOWN INDICATION
     Route: 065
     Dates: start: 20070619
  2. KARDEGIC [Suspect]
     Indication: CORONARY ARTERIAL STENT INSERTION
     Route: 065
     Dates: start: 20070619, end: 20071001
  3. KARDEGIC [Suspect]
     Indication: CORONARY ARTERY OCCLUSION
     Route: 065
     Dates: start: 20070619, end: 20071001
  4. KARDEGIC [Suspect]
     Indication: MYOCARDIAL INFARCTION
     Route: 065
     Dates: start: 20070619, end: 20071001
  5. KARDEGIC [Suspect]
     Route: 065
     Dates: start: 20071001
  6. KARDEGIC [Suspect]
     Route: 065
     Dates: start: 20071001
  7. KARDEGIC [Suspect]
     Route: 065
     Dates: start: 20071001
  8. PLAVIX [Suspect]
     Indication: CORONARY ARTERIAL STENT INSERTION
     Route: 048
     Dates: start: 20070619, end: 20071001
  9. PLAVIX [Suspect]
     Indication: CORONARY ARTERY OCCLUSION
     Route: 048
     Dates: start: 20070619, end: 20071001
  10. PLAVIX [Suspect]
     Indication: MYOCARDIAL INFARCTION
     Route: 048
     Dates: start: 20070619, end: 20071001
  11. PLAVIX [Suspect]
     Route: 048
     Dates: start: 20071001
  12. PLAVIX [Suspect]
     Route: 048
     Dates: start: 20071001
  13. PLAVIX [Suspect]
     Route: 048
     Dates: start: 20071001
  14. TAHOR [Concomitant]
     Indication: DRUG USE FOR UNKNOWN INDICATION
     Route: 065
     Dates: start: 20070619

REACTIONS (2)
  - CORONARY ARTERY STENOSIS [None]
  - IN-STENT CORONARY ARTERY RESTENOSIS [None]
